FAERS Safety Report 11822337 (Version 1)
Quarter: 2015Q4

REPORT INFORMATION
  Report Type: Spontaneous
  Country: US (occurrence: US)
  Receive Date: 20151210
  Receipt Date: 20151210
  Transmission Date: 20160305
  Serious: No
  Sender: FDA-Public Use
  Company Number: US-JNJFOC-20150112780

PATIENT
  Age: 72 Year
  Sex: Female

DRUGS (9)
  1. IMBRUVICA [Suspect]
     Active Substance: IBRUTINIB
     Indication: B-CELL SMALL LYMPHOCYTIC LYMPHOMA
     Route: 048
  2. IMBRUVICA [Suspect]
     Active Substance: IBRUTINIB
     Indication: B-CELL SMALL LYMPHOCYTIC LYMPHOMA
     Route: 048
     Dates: start: 20141016
  3. VITAMIN D3 [Concomitant]
     Active Substance: CHOLECALCIFEROL
  4. IMBRUVICA [Suspect]
     Active Substance: IBRUTINIB
     Indication: CHRONIC LYMPHOCYTIC LEUKAEMIA
     Route: 048
  5. ALLOPURINOL. [Concomitant]
     Active Substance: ALLOPURINOL
  6. MULTIVITAMINS [Concomitant]
     Active Substance: VITAMINS
  7. PROBIOTICS [Concomitant]
     Active Substance: PROBIOTICS NOS
  8. PSYLLIUM [Concomitant]
     Active Substance: PLANTAGO SEED
  9. IMBRUVICA [Suspect]
     Active Substance: IBRUTINIB
     Indication: CHRONIC LYMPHOCYTIC LEUKAEMIA
     Route: 048
     Dates: start: 20141016

REACTIONS (11)
  - Diarrhoea [Unknown]
  - Mass [Not Recovered/Not Resolved]
  - Nocturia [Not Recovered/Not Resolved]
  - Haematuria [Not Recovered/Not Resolved]
  - Sinusitis [Recovering/Resolving]
  - Ocular hyperaemia [Recovered/Resolved]
  - Micturition urgency [Not Recovered/Not Resolved]
  - Red blood cell count decreased [Not Recovered/Not Resolved]
  - Contusion [Recovering/Resolving]
  - Epistaxis [Not Recovered/Not Resolved]
  - Blood thyroid stimulating hormone increased [Recovered/Resolved]

NARRATIVE: CASE EVENT DATE: 2014
